FAERS Safety Report 17133149 (Version 3)
Quarter: 2020Q1

REPORT INFORMATION
  Report Type: Report from Study
  Country: None (occurrence: US)
  Receive Date: 20191210
  Receipt Date: 20200312
  Transmission Date: 20200409
  Serious: Yes (Hospitalization)
  Sender: FDA-Public Use
  Company Number: US-BIOVITRUM-2019US3097

PATIENT
  Sex: Female

DRUGS (11)
  1. NALTREXONE [Concomitant]
     Active Substance: NALTREXONE
  2. ALVESCO [Concomitant]
     Active Substance: CICLESONIDE
  3. BENADRYL [Concomitant]
     Active Substance: DIPHENHYDRAMINE HYDROCHLORIDE
     Dosage: DAILY
     Route: 042
  4. KETOTIFEN [Concomitant]
     Active Substance: KETOTIFEN
  5. KINERET [Suspect]
     Active Substance: ANAKINRA
     Indication: CRYOPYRIN ASSOCIATED PERIODIC SYNDROME
     Route: 058
     Dates: start: 20190822
  6. HYDROCORTISONE. [Concomitant]
     Active Substance: HYDROCORTISONE
  7. ZOFRAN [Concomitant]
     Active Substance: ONDANSETRON HYDROCHLORIDE
     Dosage: AS NEEDED
  8. VITAMIN D [Concomitant]
     Active Substance: VITAMIN D NOS
  9. ZANTAC [Concomitant]
     Active Substance: RANITIDINE HYDROCHLORIDE
  10. LEVOTHYROXINE. [Concomitant]
     Active Substance: LEVOTHYROXINE
  11. BACLOFEN. [Concomitant]
     Active Substance: BACLOFEN

REACTIONS (11)
  - Injection site pain [Unknown]
  - Condition aggravated [Unknown]
  - Injection site erythema [Unknown]
  - Injection site swelling [Unknown]
  - Injection site pruritus [Unknown]
  - Depersonalisation/derealisation disorder [Unknown]
  - Pharyngeal hypoaesthesia [Unknown]
  - Gastrointestinal disorder [Unknown]
  - Hypoaesthesia oral [Unknown]
  - Gastrointestinal motility disorder [Unknown]
  - Dizziness [Unknown]
